FAERS Safety Report 6761997-8 (Version None)
Quarter: 2010Q2

REPORT INFORMATION
  Report Type: 
  Country: None (occurrence: None)
  Receive Date: 20100609
  Receipt Date: 20100604
  Transmission Date: 20101027
  Serious: Yes (Other)
  Sender: FDA-Public Use
  Company Number: JP-SANOFI-AVENTIS-200311283JP

PATIENT
  Age: 58 Year
  Sex: Female
  Weight: 54 kg

DRUGS (11)
  1. LEFLUNOMIDE [Suspect]
     Indication: RHEUMATOID ARTHRITIS
     Route: 048
     Dates: start: 20030922, end: 20030924
  2. LEFLUNOMIDE [Suspect]
     Route: 048
     Dates: start: 20030925, end: 20031026
  3. QUESTRAN [Suspect]
     Indication: ADVERSE DRUG REACTION
     Route: 048
     Dates: start: 20031027, end: 20031113
  4. INDOMETHACIN SODIUM [Concomitant]
     Indication: RHEUMATOID ARTHRITIS
     Route: 048
  5. FAMOTIDINE [Concomitant]
     Route: 048
  6. TAKEPRON [Concomitant]
     Route: 048
  7. AMLODIN [Concomitant]
     Indication: HYPERTENSION
     Route: 048
  8. AZULFIDINE [Concomitant]
     Indication: RHEUMATOID ARTHRITIS
     Route: 048
  9. BERAPROST SODIUM [Concomitant]
     Route: 048
  10. URSO 250 [Concomitant]
     Indication: AUTOIMMUNE HEPATITIS
     Route: 048
  11. PREDNISOLONE [Concomitant]
     Indication: RHEUMATOID ARTHRITIS
     Route: 048

REACTIONS (8)
  - ALANINE AMINOTRANSFERASE INCREASED [None]
  - ASPARTATE AMINOTRANSFERASE INCREASED [None]
  - BLOOD ALKALINE PHOSPHATASE INCREASED [None]
  - BLOOD BILIRUBIN INCREASED [None]
  - BLOOD LACTATE DEHYDROGENASE INCREASED [None]
  - DIARRHOEA [None]
  - GAMMA-GLUTAMYLTRANSFERASE INCREASED [None]
  - NAUSEA [None]
